FAERS Safety Report 15479993 (Version 1)
Quarter: 2018Q4

REPORT INFORMATION
  Report Type: Spontaneous
  Country: JP (occurrence: JP)
  Receive Date: 20181009
  Receipt Date: 20181009
  Transmission Date: 20190205
  Serious: Yes (Other)
  Sender: FDA-Public Use
  Company Number: JP-MYLANLABS-2018M1072926

PATIENT

DRUGS (4)
  1. VANCOMYCIN [Suspect]
     Active Substance: VANCOMYCIN
     Indication: MENINGITIS BACTERIAL
     Route: 065
  2. VANCOMYCIN [Suspect]
     Active Substance: VANCOMYCIN
     Indication: CNS VENTRICULITIS
  3. ZYVOX [Concomitant]
     Active Substance: LINEZOLID
     Indication: CNS VENTRICULITIS
  4. ZYVOX [Concomitant]
     Active Substance: LINEZOLID
     Indication: MENINGITIS BACTERIAL
     Route: 065

REACTIONS (1)
  - Therapeutic response decreased [Unknown]
